FAERS Safety Report 11789130 (Version 1)
Quarter: 2015Q4

REPORT INFORMATION
  Report Type: Spontaneous
  Country: US (occurrence: None)
  Receive Date: 20151130
  Receipt Date: 20151130
  Transmission Date: 20160305
  Serious: Yes (Other)
  Sender: FDA-Public Use
  Company Number: None

PATIENT
  Age: 4 Year
  Sex: Female
  Weight: 16 kg

DRUGS (3)
  1. TAMIFLU [Suspect]
     Active Substance: OSELTAMIVIR PHOSPHATE
     Indication: INFLUENZA
     Dosage: 6MG/ML  TWICE DAILY  TAKEN BY MOUTH
     Route: 048
     Dates: start: 20151128, end: 20151128
  2. ALBUTEROL. [Concomitant]
     Active Substance: ALBUTEROL
  3. QVAR [Concomitant]
     Active Substance: BECLOMETHASONE DIPROPIONATE

REACTIONS (4)
  - Psychomotor hyperactivity [None]
  - Cognitive disorder [None]
  - Delirium [None]
  - Restlessness [None]

NARRATIVE: CASE EVENT DATE: 20151128
